FAERS Safety Report 4543767-4 (Version None)
Quarter: 2005Q1

REPORT INFORMATION
  Report Type: 
  Country: None (occurrence: None)
  Receive Date: 20050103
  Receipt Date: 20041130
  Transmission Date: 20050727
  Serious: Yes (Death, Hospitalization, Other)
  Sender: FDA-Public Use
  Company Number: NL-MERCK-0411NLD00049

PATIENT
  Age: 73 Year
  Sex: Female

DRUGS (5)
  1. ZETIA [Suspect]
     Route: 048
     Dates: start: 20040601, end: 20040929
  2. ROSUVASTATIN CALCIUM [Suspect]
     Route: 048
     Dates: start: 20030901, end: 20040929
  3. VENLAFAXINE HCL [Suspect]
     Route: 048
     Dates: start: 20040501, end: 20040929
  4. PANTOPRAZOLE SODIUM [Concomitant]
     Route: 048
  5. NORFLOXACIN [Concomitant]
     Route: 048

REACTIONS (12)
  - BLOOD BILIRUBIN INCREASED [None]
  - BLOOD CALCIUM DECREASED [None]
  - BLOOD LACTATE DEHYDROGENASE INCREASED [None]
  - BLOOD POTASSIUM DECREASED [None]
  - BLOOD SODIUM INCREASED [None]
  - DEATH [None]
  - HAEMOGLOBIN DECREASED [None]
  - HEART RATE INCREASED [None]
  - HYPERTONIA [None]
  - PYREXIA [None]
  - RHABDOMYOLYSIS [None]
  - WHITE BLOOD CELL COUNT INCREASED [None]
